FAERS Safety Report 6853113-9 (Version None)
Quarter: 2010Q3

REPORT INFORMATION
  Report Type: 
  Country: None (occurrence: None)
  Receive Date: 20100717
  Receipt Date: 20071129
  Transmission Date: 20110219
  Serious: Yes (Other)
  Sender: FDA-Public Use
  Company Number: US-PFIZER INC-2007102553

PATIENT
  Sex: Female
  Weight: 86.2 kg

DRUGS (11)
  1. CHANTIX [Suspect]
     Indication: SMOKING CESSATION THERAPY
     Dates: start: 20071001
  2. ALL OTHER THERAPEUTIC PRODUCTS [Suspect]
     Indication: COMA
     Dates: start: 20070901
  3. ACETYLSALICYLIC ACID [Concomitant]
  4. COREG [Concomitant]
  5. WARFARIN SODIUM [Concomitant]
  6. LISINOPRIL [Concomitant]
  7. METFORMIN HCL [Concomitant]
  8. PLAVIX [Concomitant]
  9. PROTONIX [Concomitant]
  10. SIMVASTATIN [Concomitant]
  11. SPIRONOLACTONE [Concomitant]

REACTIONS (1)
  - HALLUCINATION [None]
